FAERS Safety Report 14006469 (Version 2)
Quarter: 2017Q4

REPORT INFORMATION
  Report Type: Spontaneous
  Country: US (occurrence: US)
  Receive Date: 20170925
  Receipt Date: 20171026
  Transmission Date: 20180321
  Serious: Yes (Other)
  Sender: FDA-Public Use
  Company Number: US-ROCHE-1998095

PATIENT
  Age: 69 Year
  Sex: Male

DRUGS (1)
  1. ERIVEDGE [Suspect]
     Active Substance: VISMODEGIB
     Indication: BASAL CELL CARCINOMA
     Route: 048
     Dates: start: 20170105

REACTIONS (4)
  - Muscle spasms [Unknown]
  - Fatigue [Unknown]
  - Alopecia [Unknown]
  - Deafness [Unknown]

NARRATIVE: CASE EVENT DATE: 20170921
